FAERS Safety Report 14894243 (Version 1)
Quarter: 2018Q2

REPORT INFORMATION
  Report Type: Spontaneous
  Country: HR (occurrence: HR)
  Receive Date: 20180515
  Receipt Date: 20180515
  Transmission Date: 20180711
  Serious: Yes (Other)
  Sender: FDA-Public Use
  Company Number: HR-009507513-1805HRV004491

PATIENT
  Age: 3 Year
  Sex: Male
  Weight: 21 kg

DRUGS (1)
  1. SINGULAIR MINI 4 MG TABLETE ZA ZVAKANJE [Suspect]
     Active Substance: MONTELUKAST SODIUM
     Indication: BRONCHITIS
     Dosage: 4 MG, QD
     Route: 048
     Dates: start: 20180122, end: 20180205

REACTIONS (27)
  - Clumsiness [Recovered/Resolved]
  - Polydipsia [Recovered/Resolved]
  - Insomnia [Recovered/Resolved]
  - Fear [Recovered/Resolved]
  - Tongue discomfort [Recovered/Resolved]
  - Psychomotor hyperactivity [Recovered/Resolved]
  - Left-handedness [Recovered/Resolved]
  - Autism spectrum disorder [Recovered/Resolved]
  - Tremor [Recovered/Resolved]
  - Incontinence [Recovering/Resolving]
  - Hyperaesthesia [Recovered/Resolved]
  - Hallucination [Recovered/Resolved]
  - Paraesthesia [Recovered/Resolved]
  - Swelling face [Recovered/Resolved]
  - Pallor [Recovered/Resolved]
  - Abnormal behaviour [Recovered/Resolved]
  - Sleep terror [Recovered/Resolved]
  - Memory impairment [Recovered/Resolved]
  - Aggression [Recovered/Resolved]
  - Skin burning sensation [Recovered/Resolved]
  - Depression [Recovered/Resolved]
  - Motor dysfunction [Recovered/Resolved]
  - Dysphemia [Unknown]
  - Anxiety [Recovered/Resolved]
  - Faeces hard [Recovered/Resolved]
  - Fine motor skill dysfunction [Recovered/Resolved]
  - Muscle twitching [Recovered/Resolved]

NARRATIVE: CASE EVENT DATE: 20180122
